FAERS Safety Report 7481909-1 (Version None)
Quarter: 2011Q2

REPORT INFORMATION
  Report Type: 
  Country: None (occurrence: None)
  Receive Date: 20110509
  Receipt Date: 20110427
  Transmission Date: 20111010
  Serious: Yes (Death, Hospitalization, Other)
  Sender: FDA-Public Use
  Company Number: ACO_20893_2010

PATIENT
  Age: 49 Year
  Sex: Female
  Weight: 63.5 kg

DRUGS (8)
  1. REBIF [Suspect]
     Indication: MULTIPLE SCLEROSIS
     Dosage: 44 UG, 3 IN 1 WK
     Dates: start: 20090819, end: 20101117
  2. TOPAMAX [Concomitant]
  3. AMPYRA [Suspect]
     Indication: GAIT DISTURBANCE
     Dosage: 10 MG, BID, ORAL
     Route: 048
     Dates: start: 20100801, end: 20101101
  4. LYRICA [Concomitant]
  5. EFFEXOR [Concomitant]
  6. TRAZODONE (TRAZODONE) [Concomitant]
  7. MOTRIN [Concomitant]
  8. JOLESSA (ETHINYLESTRADIOL, LEVONORGESTREL) [Concomitant]

REACTIONS (4)
  - HEPATIC FAILURE [None]
  - COMA [None]
  - HEPATITIS FULMINANT [None]
  - RESPIRATORY FAILURE [None]
